FAERS Safety Report 7299291-1 (Version None)
Quarter: 2011Q1

REPORT INFORMATION
  Report Type: 
  Country: None (occurrence: None)
  Receive Date: 20110217
  Receipt Date: 20110205
  Transmission Date: 20110831
  Serious: Yes (Other)
  Sender: FDA-Public Use
  Company Number: GB-ELI_LILLY_AND_COMPANY-GB201102003708

PATIENT
  Age: 50 Year
  Sex: Male

DRUGS (2)
  1. TADALAFIL [Suspect]
     Indication: ERECTILE DYSFUNCTION
     Dosage: TWO DOSES OF 20 MG IN THE EVENING
  2. TADALAFIL [Suspect]
     Dosage: 1 D/F, 2/W

REACTIONS (1)
  - OPTIC NEUROPATHY [None]
